FAERS Safety Report 5314497-6 (Version None)
Quarter: 2007Q2

REPORT INFORMATION
  Report Type: 
  Country: None (occurrence: None)
  Receive Date: 20070502
  Receipt Date: 20070501
  Transmission Date: 20071010
  Serious: Yes (Hospitalization)
  Sender: FDA-Public Use
  Company Number: US-BRISTOL-MYERS SQUIBB COMPANY-13739255

PATIENT
  Age: 48 Year
  Sex: Female
  Weight: 68 kg

DRUGS (17)
  1. CARBOPLATIN [Suspect]
     Indication: BREAST CANCER METASTATIC
     Route: 042
     Dates: start: 20070329, end: 20070329
  2. IRINOTECAN HCL [Suspect]
     Indication: BREAST CANCER METASTATIC
     Route: 042
     Dates: start: 20070329, end: 20070329
  3. GABAPENTIN [Concomitant]
     Indication: NEUROPATHY PERIPHERAL
     Route: 048
     Dates: start: 20050501
  4. ASPIRIN [Concomitant]
     Indication: PROPHYLAXIS
     Route: 048
     Dates: start: 19980701
  5. ZOLOFT [Concomitant]
     Indication: DEPRESSION
     Route: 048
     Dates: start: 20060701
  6. METOPROLOL SUCCINATE [Concomitant]
     Indication: HYPERTENSION
     Route: 048
     Dates: start: 19980701
  7. LEVOTHROID [Concomitant]
     Indication: THYROID DISORDER
     Route: 048
     Dates: start: 19980701
  8. LOVASTATIN [Concomitant]
     Indication: BLOOD CHOLESTEROL INCREASED
     Route: 048
     Dates: start: 19980701
  9. MOBIC [Concomitant]
     Indication: ARTHRITIS
     Route: 048
     Dates: start: 19980701
  10. DIOVAN [Concomitant]
     Indication: HYPERTENSION
     Route: 048
     Dates: start: 19980701
  11. HUMALOG [Concomitant]
     Indication: DIABETES MELLITUS
  12. LANTUS [Concomitant]
     Indication: DIABETES MELLITUS
     Route: 058
     Dates: start: 19770101
  13. LOPERAMIDE HCL [Concomitant]
     Indication: DIARRHOEA
     Route: 048
     Dates: start: 20070301
  14. COMPAZINE [Concomitant]
     Indication: VOMITING
     Route: 048
     Dates: start: 20070301
  15. PHENERGAN HCL [Concomitant]
     Indication: CONSTIPATION
     Route: 054
     Dates: start: 20070301
  16. ZOFRAN [Concomitant]
     Indication: VOMITING
     Route: 048
     Dates: start: 20070301
  17. LEVAQUIN [Concomitant]
     Indication: PYREXIA
     Route: 048
     Dates: start: 20070401

REACTIONS (2)
  - DEHYDRATION [None]
  - NEUTROPENIA [None]
